FAERS Safety Report 19840928 (Version 1)
Quarter: 2021Q3

REPORT INFORMATION
  Report Type: Spontaneous
  Country: US (occurrence: US)
  Receive Date: 20210916
  Receipt Date: 20210916
  Transmission Date: 20211014
  Serious: No
  Sender: FDA-Public Use
  Company Number: US-009507513-2109USA003280

PATIENT
  Age: 52 Year
  Sex: Female

DRUGS (2)
  1. PRIMAXIN IV [Suspect]
     Active Substance: CILASTATIN SODIUM\IMIPENEM
     Indication: PYODERMA GANGRENOSUM
     Dosage: UNK
  2. LINEZOLID. [Concomitant]
     Active Substance: LINEZOLID
     Indication: PYODERMA GANGRENOSUM
     Dosage: UNK

REACTIONS (1)
  - Product use in unapproved indication [Unknown]
